FAERS Safety Report 19498564 (Version 1)
Quarter: 2021Q3

REPORT INFORMATION
  Report Type: Spontaneous
  Country: US (occurrence: US)
  Receive Date: 20210706
  Receipt Date: 20210706
  Transmission Date: 20211014
  Serious: Yes (Hospitalization)
  Sender: FDA-Public Use
  Company Number: US-ROCHE-2842714

PATIENT
  Sex: Male

DRUGS (6)
  1. FAMOTIDINE. [Concomitant]
     Active Substance: FAMOTIDINE
  2. AMLODIPINE [Concomitant]
     Active Substance: AMLODIPINE BESYLATE
  3. GAVRETO [Suspect]
     Active Substance: PRALSETINIB
     Indication: LUNG NEOPLASM MALIGNANT
     Route: 048
     Dates: start: 20210522
  4. TAMSULOSIN [Concomitant]
     Active Substance: TAMSULOSIN
  5. METOPROLOL. [Concomitant]
     Active Substance: METOPROLOL
  6. FISH OIL [Concomitant]
     Active Substance: FISH OIL

REACTIONS (11)
  - Ageusia [Unknown]
  - Asthenia [Unknown]
  - Dysgeusia [Unknown]
  - Constipation [Unknown]
  - Fatigue [Unknown]
  - Vomiting [Unknown]
  - Blood pressure increased [Unknown]
  - Pain [Unknown]
  - Red blood cell count decreased [Unknown]
  - Somnolence [Unknown]
  - Staphylococcal infection [Unknown]
